FAERS Safety Report 21303802 (Version 1)
Quarter: 2022Q3

REPORT INFORMATION
  Report Type: Other
  Country: US (occurrence: US)
  Receive Date: 20220907
  Receipt Date: 20220907
  Transmission Date: 20221026
  Serious: No
  Sender: FDA-Public Use
  Company Number: US-LEADIANT BIOSCIENCES, INC.-2021STPI000214

PATIENT
  Sex: Female

DRUGS (2)
  1. MATULANE [Suspect]
     Active Substance: PROCARBAZINE HYDROCHLORIDE
     Indication: Diffuse large B-cell lymphoma
     Dosage: 50 MILLIGRAM, TAKE 4 CAPSULES (200 MG TOTAL) ON MONDAY, WEDNESDAY, FRIDAY AND SUNDAY, TAKE 3 CAPSULE
     Route: 048
     Dates: start: 20210630
  2. MATULANE [Suspect]
     Active Substance: PROCARBAZINE HYDROCHLORIDE
     Dosage: UNK

REACTIONS (1)
  - Liver function test decreased [Unknown]
